FAERS Safety Report 4431686-3 (Version None)
Quarter: 2004Q3

REPORT INFORMATION
  Report Type: 
  Country: None (occurrence: None)
  Receive Date: 20040825
  Receipt Date: 20040813
  Transmission Date: 20050211
  Serious: Yes (Other)
  Sender: FDA-Public Use
  Company Number: US-JNJFOC-20040804988

PATIENT
  Sex: Female
  Weight: 71.67 kg

DRUGS (6)
  1. REMICADE [Suspect]
     Indication: CROHN'S DISEASE
     Dosage: 8 VIALS, TAKING FOR 5 YEARS
     Route: 042
  2. PREDNISONE [Concomitant]
  3. DILANTIN [Concomitant]
  4. PREVACID [Concomitant]
  5. VIOXX [Concomitant]
  6. TYLENOL [Concomitant]
     Dosage: AS NECESSARY

REACTIONS (2)
  - HYPERTENSION [None]
  - TOOTH LOSS [None]
